FAERS Safety Report 4909757-4 (Version None)
Quarter: 2006Q1

REPORT INFORMATION
  Report Type: 
  Country: None (occurrence: None)
  Receive Date: 20060208
  Receipt Date: 20060127
  Transmission Date: 20060701
  Serious: Yes (Death, Other)
  Sender: FDA-Public Use
  Company Number: 2006013900

PATIENT
  Age: 64 Year
  Sex: Female
  Weight: 113.3993 kg

DRUGS (2)
  1. CELEBREX [Suspect]
     Indication: PAIN
     Dates: start: 20050101, end: 20050101
  2. DRUG USED IN DIABETES (DRUG USED IN DIABETES) [Concomitant]

REACTIONS (5)
  - HEPATIC FAILURE [None]
  - MYOCARDIAL INFARCTION [None]
  - PULMONARY OEDEMA [None]
  - RENAL FAILURE [None]
  - YELLOW SKIN [None]
